FAERS Safety Report 17318894 (Version 1)
Quarter: 2020Q1

REPORT INFORMATION
  Report Type: Spontaneous
  Country: BR (occurrence: BR)
  Receive Date: 20200124
  Receipt Date: 20200124
  Transmission Date: 20200409
  Serious: Yes (Other)
  Sender: FDA-Public Use
  Company Number: BR-009507513-2001BRA006905

PATIENT
  Age: 40 Year
  Sex: Male
  Weight: 76 kg

DRUGS (1)
  1. LOSARTAN POTASSIUM. [Suspect]
     Active Substance: LOSARTAN POTASSIUM
     Indication: GLOMERULAR FILTRATION RATE ABNORMAL
     Dosage: 1 TABLET PER DAY
     Route: 048

REACTIONS (5)
  - Back disorder [Unknown]
  - Type 1 diabetes mellitus [Unknown]
  - Spinal deformity [Unknown]
  - Inflammation [Unknown]
  - Pain [Unknown]
